FAERS Safety Report 11394647 (Version 2)
Quarter: 2015Q3

REPORT INFORMATION
  Report Type: Report from Study
  Country: US (occurrence: None)
  Receive Date: 20150818
  Receipt Date: 20150903
  Transmission Date: 20151125
  Serious: Yes (Other)
  Sender: FDA-Public Use
  Company Number: US-2015CRT000573

PATIENT
  Age: 53 Year
  Sex: Female
  Weight: 77.1 kg

DRUGS (9)
  1. KORLYM [Suspect]
     Active Substance: MIFEPRISTONE
     Indication: CUSHING^S SYNDROME
     Route: 048
     Dates: start: 201507
  2. LISINOPRIL. [Concomitant]
     Active Substance: LISINOPRIL
  3. METFORMIN [Concomitant]
     Active Substance: METFORMIN HYDROCHLORIDE
  4. FLONASE [Concomitant]
     Active Substance: FLUTICASONE PROPIONATE
  5. HYDROXYZINE [Concomitant]
     Active Substance: HYDROXYZINE\HYDROXYZINE HYDROCHLORIDE
  6. NORVASC [Concomitant]
     Active Substance: AMLODIPINE BESYLATE
  7. INSULIN MIX (INSULIN HUMAN, INSULIN HUMAN INJECTION, ISOPHANE) [Concomitant]
  8. KORLYM [Suspect]
     Active Substance: MIFEPRISTONE
     Indication: ADRENAL DISORDER
     Route: 048
     Dates: start: 201507
  9. CRESTOR [Concomitant]
     Active Substance: ROSUVASTATIN CALCIUM

REACTIONS (16)
  - Decreased appetite [None]
  - Haematochezia [None]
  - Hypoaesthesia [None]
  - Peripheral swelling [None]
  - Nausea [None]
  - Asthenia [None]
  - Paraesthesia [None]
  - Pain in extremity [None]
  - Arthritis [None]
  - Vomiting [None]
  - Musculoskeletal stiffness [None]
  - Finger deformity [None]
  - Constipation [None]
  - Malaise [None]
  - Blood glucose decreased [None]
  - Abdominal pain [None]

NARRATIVE: CASE EVENT DATE: 2015
